FAERS Safety Report 11488750 (Version 1)
Quarter: 2015Q3

REPORT INFORMATION
  Report Type: Spontaneous
  Country: US (occurrence: US)
  Receive Date: 20150910
  Receipt Date: 20150910
  Transmission Date: 20151125
  Serious: No
  Sender: FDA-Public Use
  Company Number: US-ROCHE-1533113

PATIENT
  Age: 61 Year
  Sex: Female

DRUGS (4)
  1. SOVALDI [Suspect]
     Active Substance: SOFOSBUVIR
     Indication: HEPATITIS C
     Route: 065
     Dates: start: 20140421, end: 20140727
  2. PEGASYS [Suspect]
     Active Substance: PEGINTERFERON ALFA-2A
     Indication: HEPATITIS C
     Route: 065
     Dates: start: 20140421, end: 20140727
  3. CALCITONIN [Concomitant]
     Active Substance: CALCITONIN
     Indication: OSTEOPOROSIS
  4. RIBAVIRIN. [Suspect]
     Active Substance: RIBAVIRIN
     Indication: HEPATITIS C
     Route: 065
     Dates: start: 20140421, end: 20140727

REACTIONS (13)
  - Loss of consciousness [Unknown]
  - Respiratory disorder [Not Recovered/Not Resolved]
  - Asthma [Not Recovered/Not Resolved]
  - Sinusitis [Not Recovered/Not Resolved]
  - Haemophilus test positive [Not Recovered/Not Resolved]
  - Bacteraemia [Not Recovered/Not Resolved]
  - Disorientation [Recovering/Resolving]
  - Pyrexia [Unknown]
  - Malaise [Not Recovered/Not Resolved]
  - Mental impairment [Recovering/Resolving]
  - Fatigue [Recovering/Resolving]
  - Nausea [Recovered/Resolved]
  - Bronchitis [Not Recovered/Not Resolved]

NARRATIVE: CASE EVENT DATE: 201407
